FAERS Safety Report 16094619 (Version 2)
Quarter: 2019Q2

REPORT INFORMATION
  Report Type: Report from Study
  Country: US (occurrence: US)
  Receive Date: 20190320
  Receipt Date: 20190520
  Transmission Date: 20190711
  Serious: Yes (Death)
  Sender: FDA-Public Use
  Company Number: US-BAUSCH-BL-2019-008699

PATIENT
  Sex: Male
  Weight: 61.29 kg

DRUGS (1)
  1. XIFAXAN [Suspect]
     Active Substance: RIFAXIMIN
     Indication: HEPATIC ENCEPHALOPATHY
     Route: 065
     Dates: start: 20170329

REACTIONS (1)
  - Acute respiratory failure [Fatal]

NARRATIVE: CASE EVENT DATE: 2017
